FAERS Safety Report 7290385-3 (Version None)
Quarter: 2011Q1

REPORT INFORMATION
  Report Type: 
  Country: None (occurrence: None)
  Receive Date: 20110214
  Receipt Date: 20110208
  Transmission Date: 20110831
  Serious: Yes (Hospitalization, Other)
  Sender: FDA-Public Use
  Company Number: AT-AMGEN-UK350650

PATIENT
  Age: 79 Year
  Sex: Female

DRUGS (7)
  1. ROMIPLOSTIM [Suspect]
     Indication: IDIOPATHIC THROMBOCYTOPENIC PURPURA
     Dosage: 256 A?G, QWK
     Route: 058
     Dates: start: 20090423
  2. MEXALEN [Concomitant]
     Dosage: 500 MG, PRN
     Route: 065
     Dates: start: 20090523
  3. PANTOPRAZOLE [Concomitant]
     Dosage: 40 MG, QD
     Route: 065
  4. METOPROLOL TARTRATE [Concomitant]
     Dosage: 95 MG, BID
     Route: 065
  5. AZELASTINE HCL [Concomitant]
     Dosage: UNK UNK, UNK
     Route: 047
  6. SALMETEROL HYDROXYNAPHTHOATE [Concomitant]
     Dosage: UNK UNK, UNK
     Route: 050
     Dates: start: 20090523
  7. DILTIAZEM HYDROCHLORIDE [Concomitant]
     Dosage: 60 MG, BID
     Route: 065

REACTIONS (5)
  - MUCOSAL HAEMORRHAGE [None]
  - LYMPHADENOPATHY [None]
  - VENOUS THROMBOSIS [None]
  - OVARIAN CANCER [None]
  - METASTASES TO LYMPH NODES [None]
